FAERS Safety Report 6812735-1 (Version None)
Quarter: 2010Q3

REPORT INFORMATION
  Report Type: 
  Country: None (occurrence: None)
  Receive Date: 20100701
  Receipt Date: 20100629
  Transmission Date: 20110219
  Serious: Yes (Hospitalization)
  Sender: FDA-Public Use
  Company Number: A0867742A

PATIENT
  Age: 69 Year
  Sex: Female

DRUGS (2)
  1. AVANDIA [Suspect]
     Dosage: 4MG PER DAY
     Route: 048
     Dates: start: 20081101, end: 20090501
  2. AVANDAMET [Suspect]
     Route: 048
     Dates: start: 20070301, end: 20081101

REACTIONS (1)
  - MYOCARDIAL INFARCTION [None]
